FAERS Safety Report 8048235-3 (Version None)
Quarter: 2012Q1

REPORT INFORMATION
  Report Type: 
  Country: None (occurrence: None)
  Receive Date: 20120117
  Receipt Date: 20120106
  Transmission Date: 20120608
  Serious: Yes (Other)
  Sender: FDA-Public Use
  Company Number: US-SANOFI-AVENTIS-2012SA001433

PATIENT
  Sex: Female

DRUGS (3)
  1. LANTUS [Suspect]
     Dosage: DOSE:61 UNIT(S)
     Route: 058
     Dates: start: 20111201
  2. LANTUS [Suspect]
     Indication: TYPE 2 DIABETES MELLITUS
     Dosage: DOSE:61 UNIT(S)
     Route: 058
     Dates: start: 20110101, end: 20111201
  3. SOLOSTAR [Suspect]
     Indication: TYPE 2 DIABETES MELLITUS
     Dates: start: 20110101

REACTIONS (3)
  - NEOPLASM [None]
  - INCORRECT DOSE ADMINISTERED [None]
  - DIABETES MELLITUS INADEQUATE CONTROL [None]
